FAERS Safety Report 5655201-1 (Version None)
Quarter: 2008Q1

REPORT INFORMATION
  Report Type: 
  Country: None (occurrence: None)
  Receive Date: 20080219
  Receipt Date: 20071114
  Transmission Date: 20080703
  Serious: No
  Sender: FDA-Public Use
  Company Number: WAES 0711USA03140

PATIENT
  Age: 54 Year
  Sex: Female
  Weight: 101.6057 kg

DRUGS (11)
  1. JANUVIA [Suspect]
     Indication: DIABETES MELLITUS
     Dosage: 100 MG/DAILY/PO
     Route: 048
     Dates: start: 20070907
  2. BYETTA [Concomitant]
  3. [THERAPY UNSPECIFIED] [Concomitant]
  4. ASPIRIN [Concomitant]
  5. ATENOLOL [Concomitant]
  6. CINNAMON [Concomitant]
  7. GLIPIZIDE [Concomitant]
  8. LISINOPRIL [Concomitant]
  9. METFORMIN [Concomitant]
  10. PRAVASTATIN SODIUM [Concomitant]
  11. MULTI-VITAMINS [Concomitant]

REACTIONS (6)
  - CHEST PAIN [None]
  - COUGH [None]
  - HYPOGLYCAEMIA [None]
  - LARYNGITIS [None]
  - PHARYNGOLARYNGEAL PAIN [None]
  - RHINORRHOEA [None]
